FAERS Safety Report 10612906 (Version 2)
Quarter: 2014Q4

REPORT INFORMATION
  Report Type: Spontaneous
  Country: FR (occurrence: FR)
  Receive Date: 20141127
  Receipt Date: 20141127
  Transmission Date: 20150529
  Serious: Yes (Other)
  Sender: FDA-Public Use
  Company Number: FR-ASTRAZENECA-2013SE18843

PATIENT
  Age: 12203 Day
  Sex: Male
  Weight: 82 kg

DRUGS (5)
  1. XEROQUEL [Suspect]
     Active Substance: QUETIAPINE FUMARATE
     Indication: DYSTHYMIC DISORDER
     Route: 048
     Dates: start: 20130128, end: 20130327
  2. XEROQUEL [Suspect]
     Active Substance: QUETIAPINE FUMARATE
     Indication: DYSTHYMIC DISORDER
     Route: 048
     Dates: start: 20130328, end: 20130412
  3. XEROQUEL [Suspect]
     Active Substance: QUETIAPINE FUMARATE
     Indication: DYSTHYMIC DISORDER
     Route: 048
     Dates: start: 20130125, end: 20130127
  4. SOLIAN [Concomitant]
     Active Substance: AMISULPRIDE
     Indication: DELIRIUM
     Route: 048
     Dates: start: 20130120
  5. LYSANXIA [Concomitant]
     Active Substance: PRAZEPAM
     Indication: ANXIETY
     Route: 048
     Dates: start: 20130120, end: 20130208

REACTIONS (1)
  - Enuresis [Recovered/Resolved]

NARRATIVE: CASE EVENT DATE: 20130126
